FAERS Safety Report 4809686-0 (Version None)
Quarter: 2005Q4

REPORT INFORMATION
  Report Type: 
  Country: None (occurrence: None)
  Receive Date: 20051021
  Receipt Date: 20050620
  Transmission Date: 20060501
  Serious: Yes (Hospitalization)
  Sender: FDA-Public Use
  Company Number: 193814

PATIENT
  Age: 52 Year
  Sex: Female
  Weight: 63.5036 kg

DRUGS (4)
  1. AVONEX [Suspect]
     Indication: MULTIPLE SCLEROSIS
     Dosage: 30 UG QW IM
     Route: 030
     Dates: start: 19980501
  2. AVONEX [Suspect]
     Indication: MULTIPLE SCLEROSIS
     Dosage: 30 UG QW IM
     Route: 030
  3. BACLOFEN [Concomitant]
  4. TEGRETOL [Concomitant]

REACTIONS (5)
  - ANXIETY [None]
  - DEPRESSION [None]
  - HAEMORRHAGIC STROKE [None]
  - HYPERTENSION [None]
  - NEPHROLITHIASIS [None]
